FAERS Safety Report 10231973 (Version 20)
Quarter: 2016Q4

REPORT INFORMATION
  Report Type: Report from Study
  Country: IT (occurrence: IT)
  Receive Date: 20140612
  Receipt Date: 20161006
  Transmission Date: 20170206
  Serious: Yes (Hospitalization, Other)
  Sender: FDA-Public Use
  Company Number: IT-ROCHE-1416241

PATIENT
  Age: 70 Year
  Sex: Female
  Weight: 154 kg

DRUGS (55)
  1. LANSOPRAZOLE. [Concomitant]
     Active Substance: LANSOPRAZOLE
     Route: 065
     Dates: start: 20140416, end: 20141119
  2. LAMIVUDINE. [Concomitant]
     Active Substance: LAMIVUDINE
     Route: 048
     Dates: start: 20071030, end: 20141119
  3. OXYCODONE [Concomitant]
     Active Substance: OXYCODONE
     Indication: PROPHYLAXIS
     Route: 048
     Dates: start: 20140512, end: 20140525
  4. SOLDESAM [Concomitant]
     Active Substance: DEXAMETHASONE
     Route: 042
     Dates: start: 20140429, end: 20140429
  5. TACHIPIRINA [Concomitant]
     Active Substance: ACETAMINOPHEN
     Route: 048
     Dates: start: 20140429, end: 20140429
  6. AZITROMICINA [Concomitant]
     Active Substance: AZITHROMYCIN DIHYDRATE
     Route: 065
     Dates: start: 20140531, end: 20140605
  7. LANSOPRAZOLE. [Concomitant]
     Active Substance: LANSOPRAZOLE
     Route: 048
     Dates: start: 20140416, end: 20141119
  8. RED BLOOD CELLS [Concomitant]
     Active Substance: HUMAN RED BLOOD CELL
     Dosage: 1 UNIT
     Route: 065
     Dates: start: 20140605, end: 20140605
  9. RANITIDINE. [Concomitant]
     Active Substance: RANITIDINE
     Dosage: 1 VIAL
     Route: 042
     Dates: start: 20140423, end: 20140423
  10. TRIMETON (ITALY) [Concomitant]
     Dosage: 2 VIALS
     Route: 042
     Dates: start: 20140429, end: 20140429
  11. OBINUTUZUMAB [Suspect]
     Active Substance: OBINUTUZUMAB
     Dosage: C1D8- PLANNED INITIAL INFUSION RATE: 50, ACTUAL MAXIMAL INFUSION RATE: 400
     Route: 042
     Dates: start: 20140423, end: 20140423
  12. OBINUTUZUMAB [Suspect]
     Active Substance: OBINUTUZUMAB
     Dosage: INTRAVENOUS; TEMPORARY INTERRUPTED ON 06/JUN/2014
     Route: 042
     Dates: end: 20140707
  13. BENDAMUSTINE [Suspect]
     Active Substance: BENDAMUSTINE
     Indication: CHRONIC LYMPHOCYTIC LEUKAEMIA
     Dosage: C1D1?DATE OF LAST DOSE PRIOR TO PNEUMONITIS, FEVER AND NEUTROPENIA: 14/MAY/2014.
     Route: 042
     Dates: start: 20140415, end: 20140415
  14. LANSOPRAZOLE. [Concomitant]
     Active Substance: LANSOPRAZOLE
     Route: 065
     Dates: start: 20140414
  15. ALLOPURINOL. [Concomitant]
     Active Substance: ALLOPURINOL
     Route: 048
     Dates: start: 20140422, end: 20140511
  16. ALLOPURINOL. [Concomitant]
     Active Substance: ALLOPURINOL
     Route: 065
     Dates: start: 20140512
  17. CEFIXIMA [Concomitant]
     Active Substance: CEFIXIME
     Route: 065
     Dates: start: 20140601, end: 20140605
  18. RED BLOOD CELLS [Concomitant]
     Active Substance: HUMAN RED BLOOD CELL
     Dosage: 1 UNIT
     Route: 065
     Dates: start: 20140611, end: 20140611
  19. SOLDESAM [Concomitant]
     Active Substance: DEXAMETHASONE
     Route: 042
     Dates: start: 20140415, end: 20140416
  20. TACHIPIRINA [Concomitant]
     Active Substance: ACETAMINOPHEN
     Route: 048
     Dates: start: 20140423, end: 20140423
  21. TACHIPIRINA [Concomitant]
     Active Substance: ACETAMINOPHEN
     Route: 048
     Dates: start: 20140513, end: 20140513
  22. TRIMETON (ITALY) [Concomitant]
     Dosage: 2 VIALS
     Route: 042
     Dates: start: 20140415, end: 20140416
  23. BENDAMUSTINE [Suspect]
     Active Substance: BENDAMUSTINE
     Dosage: C1D2
     Route: 042
     Dates: start: 20140416, end: 20140416
  24. IMMUNOGLOBULINE [Concomitant]
     Indication: PROPHYLAXIS
     Dosage: EVERY 15 DAYS.
     Route: 042
     Dates: start: 20071018
  25. LANSOPRAZOLE. [Concomitant]
     Active Substance: LANSOPRAZOLE
     Route: 048
     Dates: start: 20131125, end: 20140415
  26. RED BLOOD CELLS [Concomitant]
     Active Substance: HUMAN RED BLOOD CELL
     Dosage: 1 INFUSION BAG
     Route: 042
     Dates: start: 20140818, end: 20140818
  27. RED BLOOD CELLS [Concomitant]
     Active Substance: HUMAN RED BLOOD CELL
     Dosage: 1 INFUSION BAG
     Route: 042
     Dates: start: 20140821, end: 20140821
  28. RED BLOOD CELLS [Concomitant]
     Active Substance: HUMAN RED BLOOD CELL
     Dosage: 1 INFUSION BAG
     Route: 042
     Dates: start: 20140919, end: 20140919
  29. SOLDESAM [Concomitant]
     Active Substance: DEXAMETHASONE
     Route: 042
     Dates: start: 20140423, end: 20140423
  30. TACHIPIRINA [Concomitant]
     Active Substance: ACETAMINOPHEN
     Route: 048
     Dates: start: 20140415, end: 20140416
  31. RANITIDINE. [Concomitant]
     Active Substance: RANITIDINE
     Dosage: 1 VIAL
     Route: 042
     Dates: start: 20140429, end: 20140429
  32. OBINUTUZUMAB [Suspect]
     Active Substance: OBINUTUZUMAB
     Indication: CHRONIC LYMPHOCYTIC LEUKAEMIA
     Dosage: LAST DOSE PRIOR TO PNEUMONITIS, FEVER AND NEUTROPENIA : 1000 MG ON 13/MAY/2014. DAYS 1/2 (SPLIT DOSE
     Route: 042
     Dates: start: 20140415, end: 20140415
  33. BENDAMUSTINE [Suspect]
     Active Substance: BENDAMUSTINE
     Route: 042
     Dates: end: 20140707
  34. ALLOPURINOL. [Concomitant]
     Active Substance: ALLOPURINOL
     Route: 048
     Dates: start: 20140512, end: 20140526
  35. PENTAMIDINE [Concomitant]
     Active Substance: PENTAMIDINE
     Dosage: AS REQUIRED 1 TIME EVERY 4 WEEKS.
     Route: 045
     Dates: start: 20110128, end: 20140828
  36. BENDAMUSTINE [Suspect]
     Active Substance: BENDAMUSTINE
     Dosage: C2D2; TEMPORARY INTERRUPTED ON 06/JUN/2014
     Route: 042
     Dates: start: 20140514, end: 20140514
  37. RED BLOOD CELLS [Concomitant]
     Active Substance: HUMAN RED BLOOD CELL
     Dosage: SINGLE DOSE
     Route: 042
  38. RED BLOOD CELLS [Concomitant]
     Active Substance: HUMAN RED BLOOD CELL
     Dosage: 1 UNIT
     Route: 065
     Dates: start: 20140609, end: 20140609
  39. CIPROFLOXACIN. [Concomitant]
     Active Substance: CIPROFLOXACIN
     Route: 048
     Dates: start: 20141024, end: 20141031
  40. OBINUTUZUMAB [Suspect]
     Active Substance: OBINUTUZUMAB
     Dosage: C1D2- PLANNED INITIAL INFUSION RATE: 50, ACTUAL MAXIMAL INFUSION RATE: 400
     Route: 042
     Dates: start: 20140416, end: 20140416
  41. OBINUTUZUMAB [Suspect]
     Active Substance: OBINUTUZUMAB
     Dosage: CYCLE 2, DAY1 (90 MG/M2). PLANNED INITIAL INFUSION RATE: 50, ACTUAL MAXIMAL INFUSION RATE: 400; INTR
     Route: 042
     Dates: start: 20140513, end: 20140513
  42. BENDAMUSTINE [Suspect]
     Active Substance: BENDAMUSTINE
     Dosage: C2D1, 110MG
     Route: 042
     Dates: start: 20140513, end: 20140513
  43. EUTIROX [Concomitant]
     Active Substance: LEVOTHYROXINE SODIUM
     Indication: SUPPLEMENTATION THERAPY
     Route: 048
     Dates: start: 20140512, end: 20141119
  44. FOLINA (ITALY) [Concomitant]
     Route: 048
     Dates: start: 20140512, end: 20141119
  45. RANITIDINE. [Concomitant]
     Active Substance: RANITIDINE
     Dosage: 1 VIAL
     Route: 042
     Dates: start: 20140415, end: 20140416
  46. RANITIDINE. [Concomitant]
     Active Substance: RANITIDINE
     Dosage: 1 VIAL
     Route: 042
     Dates: start: 20140513, end: 20140514
  47. TRIMETON (ITALY) [Concomitant]
     Dosage: 2 VIALS
     Route: 042
     Dates: start: 20140513, end: 20140514
  48. OBINUTUZUMAB [Suspect]
     Active Substance: OBINUTUZUMAB
     Dosage: C1D15- PLANNED INITIAL INFUSION RATE: 50, ACTUAL MAXIMAL INFUSION RATE: 400
     Route: 042
     Dates: start: 20140429, end: 20140429
  49. ALLOPURINOL. [Concomitant]
     Active Substance: ALLOPURINOL
     Route: 048
     Dates: start: 20140414, end: 20140421
  50. RED BLOOD CELLS [Concomitant]
     Active Substance: HUMAN RED BLOOD CELL
     Dosage: SINGLE DOSE?1 UNIT
     Route: 042
     Dates: start: 20140922, end: 20140922
  51. SOLDESAM [Concomitant]
     Active Substance: DEXAMETHASONE
     Route: 042
     Dates: start: 20140513, end: 20140514
  52. TRIMETON (ITALY) [Concomitant]
     Dosage: 2 VIALS
     Route: 042
     Dates: start: 20140423, end: 20140423
  53. ZOFRAN [Concomitant]
     Active Substance: ONDANSETRON HYDROCHLORIDE
     Dosage: 1 VIAL
     Route: 042
     Dates: start: 20140514, end: 20140514
  54. CIPROFLOXACIN. [Concomitant]
     Active Substance: CIPROFLOXACIN
     Route: 048
     Dates: start: 20141114, end: 20141118
  55. DELTACORTENE [Concomitant]
     Active Substance: PREDNISONE
     Route: 048
     Dates: start: 20140919, end: 20140919

REACTIONS (3)
  - Neutropenia [Not Recovered/Not Resolved]
  - Pneumonia [Recovered/Resolved]
  - Pneumonitis [Recovered/Resolved]

NARRATIVE: CASE EVENT DATE: 20140601
